FAERS Safety Report 5713908-1 (Version None)
Quarter: 2008Q2

REPORT INFORMATION
  Report Type: 
  Country: None (occurrence: None)
  Receive Date: 20080422
  Receipt Date: 20080422
  Transmission Date: 20081010
  Serious: Yes (Life-Threatening, Other)
  Sender: FDA-Public Use
  Company Number: None

PATIENT
  Age: 41 Year
  Sex: Female
  Weight: 88.905 kg

DRUGS (1)
  1. VERSED [Suspect]
     Indication: SURGERY
     Dosage: ONCE IV
     Route: 042
     Dates: start: 20080415, end: 20080415

REACTIONS (7)
  - ABNORMAL BEHAVIOUR [None]
  - AMNESIA [None]
  - BLOOD GLUCOSE INCREASED [None]
  - DEPRESSION [None]
  - MENTAL DISORDER [None]
  - MIGRAINE [None]
  - SPEECH DISORDER [None]
